FAERS Safety Report 15665751 (Version 2)
Quarter: 2018Q4

REPORT INFORMATION
  Report Type: Spontaneous
  Country: US (occurrence: US)
  Receive Date: 20181128
  Receipt Date: 20181226
  Transmission Date: 20190205
  Serious: No
  Sender: FDA-Public Use
  Company Number: US-EMD SERONO-9055379

PATIENT
  Sex: Female

DRUGS (3)
  1. REBIF [Suspect]
     Active Substance: INTERFERON BETA-1A
     Indication: MULTIPLE SCLEROSIS
     Route: 058
     Dates: start: 20180711
  2. REBIF [Suspect]
     Active Substance: INTERFERON BETA-1A
     Route: 058
     Dates: start: 2018
  3. REBIF [Suspect]
     Active Substance: INTERFERON BETA-1A
     Route: 058
     Dates: start: 2018

REACTIONS (10)
  - Pain [Unknown]
  - Abdominal pain upper [Unknown]
  - Hot flush [Unknown]
  - Feeling abnormal [Unknown]
  - Myalgia [Unknown]
  - Fatigue [Unknown]
  - Headache [Unknown]
  - Injection site reaction [Unknown]
  - Chills [Unknown]
  - Dyspepsia [Unknown]

NARRATIVE: CASE EVENT DATE: 2018
